FAERS Safety Report 9457336 (Version 1)
Quarter: 2013Q3

REPORT INFORMATION
  Report Type: Report from Study
  Country: BR (occurrence: BR)
  Receive Date: 20130814
  Receipt Date: 20130814
  Transmission Date: 20140515
  Serious: Yes (Other)
  Sender: FDA-Public Use
  Company Number: PHHY2013BR086995

PATIENT
  Sex: Female

DRUGS (6)
  1. ACLASTA [Suspect]
     Dosage: 5 MG, UNK
     Route: 042
  2. VICOG [Concomitant]
     Dosage: UNK UKN, UNK
     Dates: start: 2010
  3. CEBRALAT [Concomitant]
     Dosage: UNK UKN, UNK
     Dates: start: 2010
  4. DRAMIN [Concomitant]
     Dosage: UNK UKN, UNK
     Dates: start: 2010
  5. DIOVAN [Concomitant]
     Dosage: UNK UKN, UNK
     Dates: start: 2010
  6. DIPYRONE [Concomitant]
     Dosage: UNK UKN, UNK
     Dates: start: 2010

REACTIONS (6)
  - Lower limb fracture [Not Recovered/Not Resolved]
  - Fall [Not Recovered/Not Resolved]
  - Limb injury [Not Recovered/Not Resolved]
  - Abasia [Not Recovered/Not Resolved]
  - Pain [Not Recovered/Not Resolved]
  - Somnolence [Not Recovered/Not Resolved]
